FAERS Safety Report 5305595-1 (Version None)
Quarter: 2007Q2

REPORT INFORMATION
  Report Type: 
  Country: None (occurrence: None)
  Receive Date: 20070419
  Receipt Date: 20070419
  Transmission Date: 20071010
  Serious: Yes (Other)
  Sender: FDA-Public Use
  Company Number: None

PATIENT
  Sex: Female
  Weight: 88.4514 kg

DRUGS (12)
  1. CHANTIX [Suspect]
     Indication: SMOKING CESSATION THERAPY
     Dosage: 0.5 MG   ONCE DAILY  PO
     Route: 048
     Dates: start: 20070416, end: 20070417
  2. NICODERM [Concomitant]
  3. ATROVENT [Concomitant]
  4. ALBUTEROL [Concomitant]
  5. PROTONIX [Concomitant]
  6. ADVAIR DISKUS 100/50 [Concomitant]
  7. XANAX [Concomitant]
  8. NEURONTIN [Concomitant]
  9. LORTAB [Concomitant]
  10. PHENERGAN HCL [Concomitant]
  11. COUMADIN [Concomitant]
  12. LOVENOX [Concomitant]

REACTIONS (2)
  - HYPOAESTHESIA [None]
  - THROAT TIGHTNESS [None]
